FAERS Safety Report 25247185 (Version 1)
Quarter: 2025Q2

REPORT INFORMATION
  Report Type: Spontaneous
  Country: PL (occurrence: PL)
  Receive Date: 20250428
  Receipt Date: 20250428
  Transmission Date: 20250716
  Serious: Yes (Hospitalization, Other)
  Sender: ABBVIE
  Company Number: PL-SANDOZ-SDZ2025PL024095

PATIENT
  Age: 38 Year
  Sex: Male

DRUGS (1)
  1. ADALIMUMAB [Suspect]
     Active Substance: ADALIMUMAB
     Indication: Ankylosing spondylitis
     Route: 058
     Dates: start: 2016, end: 202410

REACTIONS (8)
  - Basal cell naevus syndrome [Unknown]
  - BASDAI score increased [Unknown]
  - Herpes virus infection [Unknown]
  - Melanocytic naevus [Unknown]
  - Chronic hepatitis B [Unknown]
  - Upper respiratory tract infection [Unknown]
  - Sinusitis [Unknown]
  - Acute hepatitis B [Unknown]

NARRATIVE: CASE EVENT DATE: 20230101
